FAERS Safety Report 5068474-3 (Version None)
Quarter: 2006Q3

REPORT INFORMATION
  Report Type: 
  Country: None (occurrence: None)
  Receive Date: 20060802
  Receipt Date: 20051014
  Transmission Date: 20061208
  Serious: No
  Sender: FDA-Public Use
  Company Number: US-BRISTOL-MYERS SQUIBB COMPANY-13145958

PATIENT
  Age: 82 Year
  Sex: Female
  Weight: 63 kg

DRUGS (6)
  1. COUMADIN [Suspect]
     Indication: PULMONARY THROMBOSIS
     Dosage: 5 MG DAILY ALTERNATING WITH 4 MG DAILY
  2. COUMADIN [Suspect]
     Indication: VENOUS LIGATION
     Dosage: 5 MG DAILY ALTERNATING WITH 4 MG DAILY
  3. COUMADIN [Suspect]
  4. COUMADIN [Suspect]
  5. MULTI-VITAMIN [Concomitant]
  6. FLAXSEED OIL [Concomitant]

REACTIONS (3)
  - OEDEMA PERIPHERAL [None]
  - PAIN IN EXTREMITY [None]
  - SKIN DISCOLOURATION [None]
